FAERS Safety Report 4315159-4 (Version None)
Quarter: 2004Q1

REPORT INFORMATION
  Report Type: 
  Country: None (occurrence: None)
  Receive Date: 20040310
  Receipt Date: 20040302
  Transmission Date: 20041129
  Serious: Yes (Hospitalization)
  Sender: FDA-Public Use
  Company Number: PHRM2004FR01042

PATIENT
  Age: 48 Year
  Sex: Male

DRUGS (2)
  1. VOLTAREN [Suspect]
     Indication: ARTHRALGIA
     Dosage: 100 MG / DAY
     Route: 048
     Dates: start: 20020515, end: 20020603
  2. PROFENID [Suspect]
     Indication: ARTHRALGIA
     Dosage: 300 MG / DAY
     Route: 048
     Dates: start: 20020515, end: 20020603

REACTIONS (2)
  - COLITIS ULCERATIVE [None]
  - SMALL INTESTINE ULCER [None]
